FAERS Safety Report 6253877-1 (Version None)
Quarter: 2009Q3

REPORT INFORMATION
  Report Type: 
  Country: None (occurrence: None)
  Receive Date: 20090702
  Receipt Date: 20090618
  Transmission Date: 20100115
  Serious: Yes (Hospitalization, Other)
  Sender: FDA-Public Use
  Company Number: PHHY2009US24463

PATIENT
  Age: 9 Year
  Sex: Male

DRUGS (6)
  1. CYCLOSPORINE [Suspect]
     Indication: STEM CELL TRANSPLANT
     Dosage: UNK
     Route: 048
  2. PREDNISONE [Suspect]
     Indication: STEM CELL TRANSPLANT
  3. IMMUNOGLOBULIN ANTI-HUMAN-LYMPHOCYTIC [Concomitant]
     Indication: STEM CELL TRANSPLANT
     Route: 042
  4. BUSULPHAN [Concomitant]
     Indication: STEM CELL TRANSPLANT
  5. CYCLOPHOSPHAMIDE [Concomitant]
     Indication: STEM CELL TRANSPLANT
  6. METHYLPREDNISOLONE [Concomitant]
     Dosage: UNK

REACTIONS (12)
  - ACUTE GRAFT VERSUS HOST DISEASE IN SKIN [None]
  - ANAEMIA [None]
  - ANAEMIA HAEMOLYTIC AUTOIMMUNE [None]
  - CHROMATURIA [None]
  - COLD AGGLUTININS [None]
  - COLD TYPE HAEMOLYTIC ANAEMIA [None]
  - ENTEROCOCCAL INFECTION [None]
  - HYPOTENSION [None]
  - INTRAVASCULAR HAEMOLYSIS [None]
  - PYREXIA [None]
  - SERRATIA INFECTION [None]
  - STAPHYLOCOCCAL INFECTION [None]
